FAERS Safety Report 18804767 (Version 1)
Quarter: 2021Q1

REPORT INFORMATION
  Report Type: Spontaneous
  Country: US (occurrence: US)
  Receive Date: 20210129
  Receipt Date: 20210129
  Transmission Date: 20210419
  Serious: No
  Sender: FDA-Public Use
  Company Number: US-UCBSA-2020031270

PATIENT
  Age: 16 Year

DRUGS (8)
  1. VALPROIC ACID. [Concomitant]
     Active Substance: VALPROIC ACID
     Indication: LENNOX-GASTAUT SYNDROME
     Dosage: UNKNOWN DOSE
  2. STIRIPENTOL [Concomitant]
     Active Substance: STIRIPENTOL
     Indication: LENNOX-GASTAUT SYNDROME
     Dosage: UNKNOWN DOSE
  3. RUFINAMIDE [Concomitant]
     Active Substance: RUFINAMIDE
     Indication: LENNOX-GASTAUT SYNDROME
     Dosage: UNKNOWN DOSE
  4. ZONISAMIDE. [Concomitant]
     Active Substance: ZONISAMIDE
     Indication: LENNOX-GASTAUT SYNDROME
     Dosage: UNKNOWN DOSE
  5. LEVETIRACETAM. [Suspect]
     Active Substance: LEVETIRACETAM
     Indication: LENNOX-GASTAUT SYNDROME
     Dosage: UNKNOWN DOSE
  6. LEVETIRACETAM. [Suspect]
     Active Substance: LEVETIRACETAM
     Indication: OFF LABEL USE
  7. CLOBAZAM. [Concomitant]
     Active Substance: CLOBAZAM
     Indication: LENNOX-GASTAUT SYNDROME
     Dosage: UNKNOWN DOSE
  8. VIGABATRIN. [Concomitant]
     Active Substance: VIGABATRIN
     Indication: LENNOX-GASTAUT SYNDROME
     Dosage: UNKNOWN DOSE

REACTIONS (1)
  - No adverse event [Unknown]
